FAERS Safety Report 4645089-X (Version None)
Quarter: 2005Q2

REPORT INFORMATION
  Report Type: 
  Country: None (occurrence: None)
  Receive Date: 20050422
  Receipt Date: 20050413
  Transmission Date: 20051028
  Serious: Yes (Other)
  Sender: FDA-Public Use
  Company Number: 2005-03-1023

PATIENT
  Age: 48 Year
  Sex: Female
  Weight: 73.4827 kg

DRUGS (16)
  1. TEMODAR [Suspect]
     Indication: BRAIN NEOPLASM
     Dosage: SEE IMAGE
     Route: 048
     Dates: start: 20041027, end: 20041001
  2. TEMODAR [Suspect]
     Indication: BRAIN NEOPLASM
     Dosage: SEE IMAGE
     Route: 048
     Dates: start: 20050101, end: 20050101
  3. TEMODAR [Suspect]
     Indication: BRAIN NEOPLASM
     Dosage: SEE IMAGE
     Route: 048
     Dates: start: 20050201, end: 20050201
  4. TEMODAR [Suspect]
     Indication: BRAIN NEOPLASM
     Dosage: SEE IMAGE
     Route: 048
     Dates: start: 20041027, end: 20050301
  5. TEMODAR [Suspect]
     Indication: BRAIN NEOPLASM
     Dosage: SEE IMAGE
     Route: 048
     Dates: start: 20050301, end: 20050301
  6. ASPIRIN [Concomitant]
  7. DILANTIN [Concomitant]
  8. CALCIUM GLUCONATE [Concomitant]
  9. TOPROL-XL [Concomitant]
  10. EFFEXOR [Concomitant]
  11. TAMOXIFEN CITRATE [Concomitant]
  12. ELAVIL [Concomitant]
  13. XANAX [Concomitant]
  14. TEGRETOL [Concomitant]
  15. DEMADEX [Concomitant]
  16. AZEMET (DOLASETRON MEYSLATE) [Concomitant]

REACTIONS (3)
  - BLOOD CHOLESTEROL INCREASED [None]
  - BLOOD TRIGLYCERIDES INCREASED [None]
  - INSOMNIA [None]
